FAERS Safety Report 5125636-4 (Version None)
Quarter: 2006Q4

REPORT INFORMATION
  Report Type: 
  Country: None (occurrence: None)
  Receive Date: 20061012
  Receipt Date: 20060928
  Transmission Date: 20070319
  Serious: Yes (Other)
  Sender: FDA-Public Use
  Company Number: PHBS2006NL15020

PATIENT
  Sex: Male

DRUGS (1)
  1. TEGRETOL [Suspect]

REACTIONS (8)
  - BACK PAIN [None]
  - FATIGUE [None]
  - LEUKOPENIA [None]
  - LYMPHOCYTIC LEUKAEMIA [None]
  - TESTICULAR PAIN [None]
  - THROMBOCYTOPENIA [None]
  - THROMBOSIS [None]
  - YELLOW SKIN [None]
